FAERS Safety Report 23794966 (Version 1)
Quarter: 2024Q2

REPORT INFORMATION
  Report Type: Spontaneous
  Country: CA (occurrence: CA)
  Receive Date: 20240429
  Receipt Date: 20240429
  Transmission Date: 20240715
  Serious: Yes (Hospitalization, Other)
  Sender: FDA-Public Use
  Company Number: CA-002147023-NVSC2022CA171964

PATIENT
  Age: 14 Year
  Sex: Male
  Weight: 40.4 kg

DRUGS (8)
  1. CYCLOPHOSPHAMIDE [Suspect]
     Active Substance: CYCLOPHOSPHAMIDE
     Indication: Recurrent cancer
     Dosage: 250 MG/M2 (MAXIMUM 5 DAYS, EVERY 21 DAYS)
     Route: 042
     Dates: start: 20220704
  2. CYCLOPHOSPHAMIDE [Suspect]
     Active Substance: CYCLOPHOSPHAMIDE
     Indication: Refractory cancer
  3. TOPOTECAN [Suspect]
     Active Substance: TOPOTECAN HYDROCHLORIDE
     Indication: Recurrent cancer
     Dosage: 0.75 MG, QD, (MAXIMUM 5 DAYS EVERY 21 DAYS)
     Route: 042
     Dates: start: 20220704
  4. TOPOTECAN [Suspect]
     Active Substance: TOPOTECAN HYDROCHLORIDE
     Indication: Refractory cancer
  5. VENETOCLAX [Suspect]
     Active Substance: VENETOCLAX
     Indication: Refractory cancer
     Dosage: 250 MG, QD
     Route: 048
     Dates: start: 20220704, end: 20220704
  6. VENETOCLAX [Suspect]
     Active Substance: VENETOCLAX
     Indication: Recurrent cancer
     Dosage: 500 MG, QD
     Route: 048
     Dates: start: 20220704
  7. VENETOCLAX [Suspect]
     Active Substance: VENETOCLAX
     Dosage: 500 MG, QD
     Route: 048
     Dates: start: 20220705
  8. FILGRASTIM [Concomitant]
     Active Substance: FILGRASTIM
     Indication: Chemotherapy side effect prophylaxis
     Dosage: 300 UG, QD
     Route: 065
     Dates: start: 20220712

REACTIONS (17)
  - Oropharyngeal pain [Unknown]
  - Taste disorder [Unknown]
  - Adrenal insufficiency [Not Recovered/Not Resolved]
  - Hypokalaemia [Unknown]
  - Headache [Unknown]
  - Febrile neutropenia [Recovered/Resolved]
  - Febrile neutropenia [Recovered/Resolved]
  - White blood cell count decreased [Unknown]
  - Pyrexia [Unknown]
  - Anaemia [Unknown]
  - Fatigue [Unknown]
  - Decreased appetite [Unknown]
  - Platelet count decreased [Unknown]
  - Pancytopenia [Unknown]
  - Hypoalbuminaemia [Unknown]
  - Blood bilirubin increased [Unknown]
  - White blood cell count decreased [Unknown]

NARRATIVE: CASE EVENT DATE: 20220714
